FAERS Safety Report 6763697-7 (Version None)
Quarter: 2010Q2

REPORT INFORMATION
  Report Type: 
  Country: None (occurrence: None)
  Receive Date: 20100608
  Receipt Date: 20100526
  Transmission Date: 20101027
  Serious: Yes (Hospitalization)
  Sender: FDA-Public Use
  Company Number: UTC-001122

PATIENT
  Age: 28 Year
  Sex: Female
  Weight: 50.9 kg

DRUGS (6)
  1. REMODULIN [Suspect]
     Indication: PULMONARY HYPERTENSION
     Dosage: 72 UG/ KG (0.05 UG/KG, 1 IN 1 MIN, SUBCUTANEOUS
     Route: 058
     Dates: start: 20091016
  2. REVATIO [Concomitant]
  3. LETAIRIS(AMBRISENTAN) [Concomitant]
  4. COUMADIN [Concomitant]
  5. METHADONE HCL [Concomitant]
  6. OXYCODONE HCL [Concomitant]

REACTIONS (1)
  - ABDOMINAL DISTENSION [None]
